FAERS Safety Report 4878810-6 (Version None)
Quarter: 2005Q4

REPORT INFORMATION
  Report Type: 
  Country: None (occurrence: None)
  Receive Date: 20051209
  Receipt Date: 20050411
  Transmission Date: 20060501
  Serious: Yes (Other)
  Sender: FDA-Public Use
  Company Number: USA-2003-0010746

PATIENT
  Sex: Female

DRUGS (1)
  1. OXYCONTIN [Suspect]
     Dosage: NASAL
     Route: 045

REACTIONS (8)
  - CHILLS [None]
  - DECREASED INTEREST [None]
  - DRUG ABUSER [None]
  - DRUG DEPENDENCE [None]
  - HEADACHE [None]
  - MUSCLE TWITCHING [None]
  - PAIN IN EXTREMITY [None]
  - WEIGHT DECREASED [None]
